FAERS Safety Report 9233302 (Version 2)
Quarter: 2013Q2

REPORT INFORMATION
  Report Type: Spontaneous
  Country: CA (occurrence: CA)
  Receive Date: 20130416
  Receipt Date: 20130515
  Transmission Date: 20140414
  Serious: Yes (Hospitalization, Other)
  Sender: FDA-Public Use
  Company Number: CA-AMGEN-CANSP2013025357

PATIENT
  Age: 73 Year
  Sex: Male
  Weight: 63.64 kg

DRUGS (1)
  1. PROLIA [Suspect]
     Indication: OSTEOPOROSIS
     Dosage: 60 MG, Q6MO
     Route: 058
     Dates: start: 20120405

REACTIONS (5)
  - Ejection fraction abnormal [Unknown]
  - Coronary artery stenosis [Unknown]
  - Tricuspid valve incompetence [Unknown]
  - Urinary tract infection [Unknown]
  - Oliguria [Unknown]
